FAERS Safety Report 13835419 (Version 1)
Quarter: 2017Q3

REPORT INFORMATION
  Report Type: Spontaneous
  Country: HR (occurrence: HR)
  Receive Date: 20170804
  Receipt Date: 20170804
  Transmission Date: 20171127
  Serious: Yes (Other)
  Sender: FDA-Public Use
  Company Number: HR-PFIZER INC-2017337190

PATIENT
  Age: 80 Year
  Sex: Female

DRUGS (9)
  1. MELIAM [Suspect]
     Active Substance: MELOXICAM
     Route: 048
  2. MEGLUCON [Suspect]
     Active Substance: METFORMIN HYDROCHLORIDE
     Route: 048
  3. FOLACIN /00024201/ [Suspect]
     Active Substance: FOLIC ACID
     Route: 048
  4. LORSILAN [Suspect]
     Active Substance: LORAZEPAM
     Route: 048
  5. PREGABALIN. [Suspect]
     Active Substance: PREGABALIN
     Route: 048
  6. LUMIDOL RETARD [Suspect]
     Active Substance: TRAMADOL HYDROCHLORIDE
     Route: 048
  7. CALIXTA [Suspect]
     Active Substance: MIRTAZAPINE
     Route: 048
  8. NEURONTIN [Suspect]
     Active Substance: GABAPENTIN
     Route: 048
  9. CO PERINEVA [Suspect]
     Active Substance: INDAPAMIDE\PERINDOPRIL ERBUMINE
     Route: 048

REACTIONS (1)
  - Altered state of consciousness [Unknown]

NARRATIVE: CASE EVENT DATE: 20170524
